APPROVED DRUG PRODUCT: DICLOFENAC SODIUM
Active Ingredient: DICLOFENAC SODIUM
Strength: 1.5%
Dosage Form/Route: SOLUTION;TOPICAL
Application: A202852 | Product #001 | TE Code: AT
Applicant: WATSON LABORATORIES INC
Approved: Nov 24, 2014 | RLD: No | RS: No | Type: RX